FAERS Safety Report 24318626 (Version 1)
Quarter: 2024Q3

REPORT INFORMATION
  Report Type: Spontaneous
  Country: CN (occurrence: CN)
  Receive Date: 20240913
  Receipt Date: 20240913
  Transmission Date: 20241016
  Serious: Yes (Other)
  Sender: IPSEN
  Company Number: None

PATIENT
  Age: 69 Year
  Sex: Male

DRUGS (4)
  1. IRINOTECAN HYDROCHLORIDE [Suspect]
     Active Substance: IRINOTECAN HYDROCHLORIDE
     Indication: Pancreatic carcinoma recurrent
     Dosage: 86 MG, EVERY 2 WEEKS
     Route: 042
     Dates: start: 20240530, end: 20240530
  2. OXALIPLATIN [Suspect]
     Active Substance: OXALIPLATIN
     Indication: Pancreatic carcinoma recurrent
     Dosage: 100 MG, EVERY 2 WEEKS
     Route: 042
     Dates: start: 20240530, end: 20240530
  3. FLUOROURACIL [Suspect]
     Active Substance: FLUOROURACIL
     Indication: Pancreatic carcinoma recurrent
     Dosage: 700 MG, EVERY 2 WEEKS
     Route: 042
     Dates: start: 20240530, end: 20240530
  4. FLUOROURACIL [Suspect]
     Active Substance: FLUOROURACIL
     Dosage: 4000 MG, EVERY 2 WEEKS
     Dates: start: 20240530, end: 20240531

REACTIONS (2)
  - Myelosuppression [Recovering/Resolving]
  - Product use issue [Recovered/Resolved]

NARRATIVE: CASE EVENT DATE: 20240530
